FAERS Safety Report 9285880 (Version 5)
Quarter: 2025Q2

REPORT INFORMATION
  Report Type: Spontaneous
  Country: FR (occurrence: FR)
  Receive Date: 20130513
  Receipt Date: 20250409
  Transmission Date: 20250717
  Serious: Yes (Hospitalization, Other)
  Sender: PFIZER
  Company Number: FR-PFIZER INC-2013139435

PATIENT
  Age: 50 Year
  Sex: Male
  Weight: 95 kg

DRUGS (6)
  1. CYTARABINE [Suspect]
     Active Substance: CYTARABINE
     Indication: Acute myeloid leukaemia
     Dosage: 1 G, 1X/DAY
     Route: 042
     Dates: start: 20121207, end: 20121209
  2. CYTARABINE [Suspect]
     Active Substance: CYTARABINE
     Indication: Chemotherapy
     Dosage: 6 G, 2X/DAY (6 G, EVERY 12 HOURS, ADMINISTERED ON DAY 1, 3 AND 5-HIGH DOSES)
     Route: 042
     Dates: start: 20121212
  3. LENOGRASTIM [Suspect]
     Active Substance: LENOGRASTIM
     Indication: Acute myeloid leukaemia
     Dosage: 470 UG, 1X/DAY
     Route: 042
     Dates: start: 20121207, end: 20121209
  4. LENOGRASTIM [Suspect]
     Active Substance: LENOGRASTIM
     Indication: Chemotherapy
     Dosage: 470 UG, 1X/DAY (ON DAYS 1, 2, 3, AND 4)
     Route: 042
     Dates: start: 20121212
  5. DAUNORUBICIN [Suspect]
     Active Substance: DAUNORUBICIN
     Indication: Acute myeloid leukaemia
     Dosage: 120 MG, 1X/DAY
     Route: 042
     Dates: start: 20121207, end: 20121212
  6. DAUNORUBICIN [Suspect]
     Active Substance: DAUNORUBICIN
     Indication: Chemotherapy

REACTIONS (7)
  - Cutaneous vasculitis [Recovered/Resolved]
  - Disease recurrence [Recovering/Resolving]
  - Proteinuria [Recovering/Resolving]
  - Renal failure [Recovering/Resolving]
  - Pneumonia [Recovering/Resolving]
  - Activated partial thromboplastin time prolonged [Recovering/Resolving]
  - Haemophagocytic lymphohistiocytosis [Recovering/Resolving]

NARRATIVE: CASE EVENT DATE: 20121210
